FAERS Safety Report 11451075 (Version 6)
Quarter: 2017Q3

REPORT INFORMATION
  Report Type: Report from Study
  Country: DE (occurrence: DE)
  Receive Date: 20150903
  Receipt Date: 20170819
  Transmission Date: 20171127
  Serious: Yes (Hospitalization)
  Sender: FDA-Public Use
  Company Number: DE-ROCHE-1629120

PATIENT
  Age: 50 Year
  Sex: Female
  Weight: 84 kg

DRUGS (9)
  1. FOLIC ACID. [Concomitant]
     Active Substance: FOLIC ACID
  2. ROACTEMRA [Suspect]
     Active Substance: TOCILIZUMAB
     Route: 058
  3. CORTISONE [Concomitant]
     Active Substance: CORTISONE\HYDROCORTISONE
     Route: 065
  4. METOPROLOL. [Concomitant]
     Active Substance: METOPROLOL
     Route: 065
  5. OMEP [Concomitant]
     Active Substance: OMEPRAZOLE
  6. TORASEMIDE [Concomitant]
     Active Substance: TORSEMIDE
  7. ROACTEMRA [Suspect]
     Active Substance: TOCILIZUMAB
     Indication: RHEUMATOID ARTHRITIS
     Route: 058
     Dates: start: 20150619
  8. VIGANTOLETTEN [Concomitant]
     Active Substance: CHOLECALCIFEROL
  9. CORTISONE [Concomitant]
     Active Substance: CORTISONE\HYDROCORTISONE
     Indication: RHEUMATOID ARTHRITIS
     Route: 065

REACTIONS (12)
  - Bronchitis [Unknown]
  - Impaired healing [Recovered/Resolved]
  - Rheumatoid lung [Unknown]
  - Wound haemorrhage [Unknown]
  - Musculoskeletal stiffness [Unknown]
  - Pain [Unknown]
  - Inappropriate schedule of drug administration [Unknown]
  - Cough [Unknown]
  - Pain in extremity [Not Recovered/Not Resolved]
  - Vitamin D deficiency [Unknown]
  - Dyspnoea [Unknown]
  - Rib fracture [Unknown]

NARRATIVE: CASE EVENT DATE: 20150619
